FAERS Safety Report 20417763 (Version 5)
Quarter: 2025Q2

REPORT INFORMATION
  Report Type: Spontaneous
  Country: FR (occurrence: FR)
  Receive Date: 20220202
  Receipt Date: 20250516
  Transmission Date: 20250717
  Serious: Yes (Death, Life-Threatening, Hospitalization, Other)
  Sender: NOVARTIS
  Company Number: FR-NOVARTISPH-NVSC2022FR021780

PATIENT
  Age: 58 Year
  Sex: Male
  Weight: 106 kg

DRUGS (7)
  1. ATORVASTATIN [Interacting]
     Active Substance: ATORVASTATIN
     Indication: Product used for unknown indication
     Route: 048
  2. RAMIPRIL [Interacting]
     Active Substance: RAMIPRIL
     Indication: Product used for unknown indication
     Route: 048
  3. AMLODIPINE [Interacting]
     Active Substance: AMLODIPINE BESYLATE
     Indication: Product used for unknown indication
     Route: 048
  4. BISOPROLOL [Interacting]
     Active Substance: BISOPROLOL
     Indication: Product used for unknown indication
     Route: 048
  5. APIXABAN [Interacting]
     Active Substance: APIXABAN
     Indication: Atrial fibrillation
     Dosage: 5 MG, BID
     Route: 048
  6. APIXABAN [Interacting]
     Active Substance: APIXABAN
     Indication: Suicide attempt
  7. EPLERENONE [Suspect]
     Active Substance: EPLERENONE
     Indication: Product used for unknown indication
     Route: 048

REACTIONS (9)
  - Cardiogenic shock [Fatal]
  - Cardiac failure [Fatal]
  - Toxicity to various agents [Fatal]
  - Renal failure [Fatal]
  - Poisoning deliberate [Fatal]
  - Drug interaction [Fatal]
  - Toxicity to various agents [Unknown]
  - Suicide attempt [Unknown]
  - Acute kidney injury [Unknown]
